FAERS Safety Report 6402757-7 (Version None)
Quarter: 2009Q4

REPORT INFORMATION
  Report Type: 
  Country: None (occurrence: None)
  Receive Date: 20091016
  Receipt Date: 20091006
  Transmission Date: 20100525
  Serious: Yes (Hospitalization)
  Sender: FDA-Public Use
  Company Number: JP-RANBAXY-2009RR-27675

PATIENT
  Sex: Male

DRUGS (6)
  1. FENOFIBRATE [Suspect]
     Indication: DYSLIPIDAEMIA
     Dosage: 134 MG, QD
     Route: 048
     Dates: start: 20080304, end: 20090101
  2. WARFARIN SODIUM [Suspect]
     Dosage: UNK
     Route: 065
     Dates: start: 20080627, end: 20090414
  3. CEFCAPENE PIVOXIL HYDROCHLORIDE [Suspect]
     Indication: BRONCHITIS
     Dosage: 300 MG, QD
     Route: 048
     Dates: start: 20090420, end: 20090426
  4. TAMSULOSIN HYDROCHLORIDE [Concomitant]
     Dosage: UNK
     Route: 065
     Dates: start: 20060825, end: 20090428
  5. ENALAPRIL MALEATE [Concomitant]
     Dosage: UNK
     Route: 065
     Dates: start: 20060825
  6. NICORANDIL [Concomitant]
     Dosage: UNK
     Route: 065
     Dates: start: 20060825, end: 20090428

REACTIONS (3)
  - DRUG INTERACTION [None]
  - HAEMATOMA [None]
  - HAEMATURIA [None]
